FAERS Safety Report 8620203-X (Version None)
Quarter: 2012Q3

REPORT INFORMATION
  Report Type: 
  Country: None (occurrence: None)
  Receive Date: 20120824
  Receipt Date: 20120731
  Transmission Date: 20120928
  Serious: No
  Sender: FDA-Public Use
  Company Number: US-009507513-1208USA000204

PATIENT

DRUGS (2)
  1. MIRALAX [Suspect]
     Indication: PRODUCT USED FOR UNKNOWN INDICATION
     Dosage: UNK, TID
     Route: 048
     Dates: start: 20120701
  2. MIRALAX [Suspect]
     Indication: MEDICAL OBSERVATION
     Dosage: UNK, BID
     Route: 048
     Dates: start: 20120701

REACTIONS (4)
  - INCORRECT DRUG ADMINISTRATION DURATION [None]
  - DYSGEUSIA [None]
  - ABNORMAL FAECES [None]
  - INCORRECT DRUG ADMINISTRATION RATE [None]
